FAERS Safety Report 7534139-9 (Version None)
Quarter: 2011Q2

REPORT INFORMATION
  Report Type: 
  Country: None (occurrence: None)
  Receive Date: 20110608
  Receipt Date: 20061031
  Transmission Date: 20111010
  Serious: Yes (Other)
  Sender: FDA-Public Use
  Company Number: PHNU2006AU01804

PATIENT
  Sex: Female

DRUGS (2)
  1. ANTIPSYCHOTICS [Concomitant]
  2. CLOZAPINE [Suspect]
     Route: 048
     Dates: start: 20020101, end: 20030501

REACTIONS (1)
  - CATARACT [None]
